FAERS Safety Report 24312296 (Version 5)
Quarter: 2025Q2

REPORT INFORMATION
  Report Type: Report from Study
  Country: US (occurrence: US)
  Receive Date: 20240912
  Receipt Date: 20250410
  Transmission Date: 20250717
  Serious: Yes (Other)
  Sender: CSL BEHRING
  Company Number: US-BEH-2024176530

PATIENT
  Age: 82 Year
  Sex: Female

DRUGS (2)
  1. HIZENTRA [Suspect]
     Active Substance: HUMAN IMMUNOGLOBULIN G
     Indication: Product used for unknown indication
     Route: 065
  2. HIZENTRA [Suspect]
     Active Substance: HUMAN IMMUNOGLOBULIN G
     Route: 065

REACTIONS (6)
  - Dementia [Unknown]
  - Fear of injection [Unknown]
  - Surgery [Unknown]
  - Malaise [Unknown]
  - Product dose omission issue [Unknown]
  - Product dose omission in error [Unknown]

NARRATIVE: CASE EVENT DATE: 20240529
